FAERS Safety Report 16024617 (Version 1)
Quarter: 2019Q1

REPORT INFORMATION
  Report Type: Spontaneous
  Country: DK (occurrence: DK)
  Receive Date: 20190301
  Receipt Date: 20190301
  Transmission Date: 20190418
  Serious: Yes (Hospitalization)
  Sender: FDA-Public Use
  Company Number: DK-B.I. PHARMACEUTICALS,INC./RIDGEFIELD-2019-12-000684

PATIENT
  Age: 67 Year
  Sex: Male
  Weight: 112 kg

DRUGS (1)
  1. JARDIANCE [Suspect]
     Active Substance: EMPAGLIFLOZIN
     Indication: TYPE 2 DIABETES MELLITUS
     Dosage: STRENGTH: 10 MG
     Route: 048
     Dates: start: 20170510, end: 20180601

REACTIONS (1)
  - Fournier^s gangrene [Recovered/Resolved]

NARRATIVE: CASE EVENT DATE: 20180311
